FAERS Safety Report 6757115-2 (Version None)
Quarter: 2010Q2

REPORT INFORMATION
  Report Type: 
  Country: None (occurrence: None)
  Receive Date: 20100604
  Receipt Date: 20100429
  Transmission Date: 20101027
  Serious: Yes (Other)
  Sender: FDA-Public Use
  Company Number: CI-GILEAD-2010-0029550

PATIENT
  Age: 20 Year
  Sex: Female
  Weight: 47 kg

DRUGS (5)
  1. TRUVADA [Suspect]
     Indication: HIV INFECTION
     Dates: start: 20081118, end: 20090602
  2. ALUVIA [Concomitant]
     Indication: HIV INFECTION
     Dates: start: 20081118, end: 20090902
  3. DUOVIR [Concomitant]
     Indication: HIV INFECTION
     Dates: start: 20090602, end: 20090902
  4. TRIMETHOPRIM [Concomitant]
     Indication: OPPORTUNISTIC INFECTION PROPHYLAXIS
     Dates: start: 20080818, end: 20090529
  5. SULFAMETHOXAZOLE [Concomitant]
     Indication: OPPORTUNISTIC INFECTION PROPHYLAXIS
     Dates: start: 20080818, end: 20090529

REACTIONS (1)
  - ABORTION SPONTANEOUS [None]
